FAERS Safety Report 14393682 (Version 2)
Quarter: 2018Q1

REPORT INFORMATION
  Report Type: Report from Study
  Country: TW (occurrence: US)
  Receive Date: 20180116
  Receipt Date: 20180315
  Transmission Date: 20180509
  Serious: Yes (Other)
  Sender: FDA-Public Use
  Company Number: TW-MYLANLABS-2018M1002575

PATIENT
  Age: 3 Decade
  Sex: Female

DRUGS (4)
  1. HEPARIN [Suspect]
     Active Substance: HEPARIN SODIUM
     Dosage: 300 U/KG (THREE WEEKS AFTER FIRST EXPOSURE).
     Route: 065
  2. ABCIXIMAB [Concomitant]
     Active Substance: ABCIXIMAB
     Indication: ANTICOAGULANT THERAPY
     Dosage: 0.25 MG/KG; FOLLOWED BY CONTINUOUS INFUSION OF 0.125MICROG/KG/MIN
     Route: 065
  3. ABCIXIMAB [Concomitant]
     Active Substance: ABCIXIMAB
     Dosage: 0.125MICROGRAM/KG/MIN; ROUTE: INFUSION
     Route: 050
  4. HEPARIN [Suspect]
     Active Substance: HEPARIN SODIUM
     Indication: ANTICOAGULANT THERAPY
     Dosage: INITIAL DOSE NOT STATED. DRUG DISCONTINUED AND LATER RE-ADMINISTERED AFTER THREE WEEKS.
     Route: 058

REACTIONS (5)
  - Pulmonary embolism [Unknown]
  - Heparin-induced thrombocytopenia [Unknown]
  - Intracardiac thrombus [Recovered/Resolved]
  - Pulmonary infarction [Unknown]
  - Injection site necrosis [Unknown]
